FAERS Safety Report 12279035 (Version 2)
Quarter: 2016Q2

REPORT INFORMATION
  Report Type: Report from Study
  Country: US (occurrence: US)
  Receive Date: 20160418
  Receipt Date: 20160517
  Transmission Date: 20160815
  Serious: Yes (Hospitalization, Other)
  Sender: FDA-Public Use
  Company Number: ADR-2015-00744

PATIENT
  Age: 62 Year
  Sex: Female

DRUGS (13)
  1. BACLOFEN. [Suspect]
     Active Substance: BACLOFEN
     Dosage: 176.27 MCG/DAY
     Route: 037
     Dates: start: 20140829
  2. BACLOFEN. [Suspect]
     Active Substance: BACLOFEN
     Dosage: 150.33 MCG/DAY
     Route: 037
     Dates: start: 20141103
  3. BUPIVACAINE. [Suspect]
     Active Substance: BUPIVACAINE
     Dosage: 22.550 MG/DAY
     Route: 037
     Dates: start: 20141103
  4. DILAUDID [Suspect]
     Active Substance: HYDROMORPHONE HYDROCHLORIDE
     Dosage: 1.6511 MG/DAY
     Route: 037
     Dates: end: 20140829
  5. DILAUDID [Suspect]
     Active Substance: HYDROMORPHONE HYDROCHLORIDE
     Dosage: 1.7627 MG/DAY
     Route: 037
     Dates: start: 20140829
  6. DILAUDID [Suspect]
     Active Substance: HYDROMORPHONE HYDROCHLORIDE
     Dosage: 1.5033 MG/DAY
     Route: 037
     Dates: start: 20141103
  7. DILAUDID [Suspect]
     Active Substance: HYDROMORPHONE HYDROCHLORIDE
     Dosage: 1.6511 MG/DAY
     Route: 037
     Dates: start: 20150312
  8. BUPIVACAINE. [Suspect]
     Active Substance: BUPIVACAINE
     Dosage: 26.440 MG/DAY
     Route: 037
     Dates: start: 20140829
  9. BACLOFEN. [Suspect]
     Active Substance: BACLOFEN
     Dosage: 165.11 MCG/DAY
     Route: 037
     Dates: start: 20150312
  10. BUPIVACAINE. [Suspect]
     Active Substance: BUPIVACAINE
     Dosage: 24.766 MG/DAY
     Route: 037
     Dates: end: 20140829
  11. BACLOFEN. [Suspect]
     Active Substance: BACLOFEN
     Dosage: 165.11 MCG/DAY
     Route: 037
     Dates: end: 20140829
  12. BUPIVACAINE. [Suspect]
     Active Substance: BUPIVACAINE
     Dosage: 24.766 MG/DAY
     Route: 037
     Dates: start: 20150312
  13. CLONIDINE. [Suspect]
     Active Substance: CLONIDINE
     Route: 037

REACTIONS (9)
  - Nausea [Recovered/Resolved]
  - Pain [Recovered/Resolved]
  - Hypertension [Recovered/Resolved]
  - Adverse drug reaction [Recovered/Resolved]
  - Asthenia [Recovered/Resolved]
  - Drug withdrawal syndrome [Recovered/Resolved]
  - Tremor [Recovered/Resolved]
  - Sedation [Recovered/Resolved]
  - Vomiting [Recovered/Resolved]

NARRATIVE: CASE EVENT DATE: 20140829
